FAERS Safety Report 18992134 (Version 1)
Quarter: 2021Q1

REPORT INFORMATION
  Report Type: Spontaneous
  Country: NL (occurrence: NL)
  Receive Date: 20210310
  Receipt Date: 20210310
  Transmission Date: 20210420
  Serious: Yes (Other)
  Sender: FDA-Public Use
  Company Number: NL-TEVA-2021-NL-1887842

PATIENT
  Age: 73 Year
  Sex: Female
  Weight: 85 kg

DRUGS (11)
  1. HYDROXOCOBALAMINE INJVLST  500UG/ML / HYDROCOBAMINE INJVLST 500MCG/ML [Concomitant]
     Dosage: 500 UG/ML (MICROGRAM PER MILLILITER); THERAPY START DATE; THERAPY END DATE : ASKU
  2. LENVATINIB CAPSULE 10MG / LENVIMA CAPSULE 10MG [Concomitant]
     Dosage: 10 MG (MILLIGRAM); THERAPY START DATE; THERAPY END DATE : ASKED BUT UNKNOWN
  3. LISINOPRIL TABLET 10MG / BRAND NAME NOT SPECIFIED [Suspect]
     Active Substance: LISINOPRIL
     Dosage: 10 MG (MILLIGRAM); THERAPY START DATE; THERAPY END DATE : ASKED BUT UNKNOWN
  4. ALFACALCIDOL CAPSULE 0,5UG / BRAND NAME NOT SPECIFIED [Concomitant]
     Dosage: 0.5 UG (MICROGRAM); THERAPY START DATE; THERAPY END DATE : ASKED BUT UNKNOWN
  5. FERROFUMARAAT TABLET 200MG / BRAND NAME NOT SPECIFIED [Concomitant]
     Active Substance: FERROUS FUMARATE
     Dosage: 200 MG (MILLIGRAM); THERAPY START DATE; THERAPY END DATE : ASKED BUT UNKNOWN
  6. AMLODIPINE [Concomitant]
     Active Substance: AMLODIPINE BESYLATE
     Dosage: 10 MG (MILLIGRAM); THERAPY START DATE; THERAPY END DATE : ASKED BUT UNKNOWN
  7. RISPERIDON TABLET OMHULD 1MG / RISPERDAL TABLET OMHULD 1MG [Concomitant]
     Dosage: 1 MG (MILLIGRAM); THERAPY START DATE; THERAPY END DATE : ASKED BUT UNKNOWN
  8. LEVOTHYROXINE CAPSULE 150UG / BRAND NAME NOT SPECIFIED [Concomitant]
     Dosage: 150 UG (MICROGRAM); THERAPY START DATE; THERAPY END DATE : ASKED BUT UNKNOWN
  9. ALENDRONIN/CALCIUMCAR/COLECAL ORA (ALENCA D3 500) / BRAND NAME NOT SPE [Concomitant]
     Dosage: THERAPY START DATE; THERAPY END DATE : ASKED BUT UNKNOWN
  10. LISINOPRIL TABLET 10MG / BRAND NAME NOT SPECIFIED [Suspect]
     Active Substance: LISINOPRIL
     Indication: CARDIAC FAILURE
     Dosage: 10 MG (MILLIGRAM)
     Dates: start: 20201209, end: 20210217
  11. ASCORBINEZUUR TABLET 500MG / BRAND NAME NOT SPECIFIED [Concomitant]
     Dosage: 500 MG (MILLIGRAM); THERAPY START DATE; THERAPY END DATE : ASKED BUT UNKNOWN

REACTIONS (1)
  - Tongue oedema [Recovered/Resolved]

NARRATIVE: CASE EVENT DATE: 20210217
